FAERS Safety Report 4641667-2 (Version None)
Quarter: 2005Q2

REPORT INFORMATION
  Report Type: 
  Country: None (occurrence: None)
  Receive Date: 20050421
  Receipt Date: 20050415
  Transmission Date: 20051028
  Serious: Yes (Death)
  Sender: FDA-Public Use
  Company Number: Q05-005

PATIENT
  Sex: Male
  Weight: 64.4108 kg

DRUGS (2)
  1. SAMARIUM SM 153 (QUADRAMET) [Suspect]
     Indication: METASTASES TO BONE
     Dosage: 60 MCI (1 MCI/KG) IV
     Route: 042
     Dates: start: 20041209
  2. SAMARIUM SM 153 (QUADRAMET) [Suspect]
     Indication: NEOPLASM PROSTATE
     Dosage: 60 MCI (1 MCI/KG) IV
     Route: 042
     Dates: start: 20041209

REACTIONS (3)
  - MULTI-ORGAN FAILURE [None]
  - NEOPLASM PROGRESSION [None]
  - PROSTATE CANCER [None]
